FAERS Safety Report 5527686-2 (Version None)
Quarter: 2007Q4

REPORT INFORMATION
  Report Type: 
  Country: None (occurrence: None)
  Receive Date: 20071128
  Receipt Date: 20071119
  Transmission Date: 20080405
  Serious: Yes (Other)
  Sender: FDA-Public Use
  Company Number: US-ROCHE-532532

PATIENT
  Age: 57 Year
  Sex: Female
  Weight: 64.9 kg

DRUGS (7)
  1. BONIVA [Suspect]
     Indication: OSTEOPOROSIS
     Route: 048
     Dates: start: 20071012, end: 20071012
  2. MACROBID [Concomitant]
     Indication: DRUG USE FOR UNKNOWN INDICATION
  3. VITAMIN TAB [Concomitant]
     Indication: DRUG USE FOR UNKNOWN INDICATION
     Dosage: REPORTED AS DEPLAN VITAMIN
  4. ROXICODONE [Concomitant]
     Indication: DRUG USE FOR UNKNOWN INDICATION
     Dosage: USED AS NEEDED
  5. OXYCONTIN [Concomitant]
     Indication: DRUG USE FOR UNKNOWN INDICATION
  6. SOMA [Concomitant]
     Indication: DRUG USE FOR UNKNOWN INDICATION
  7. BENICAR [Concomitant]
     Indication: DRUG USE FOR UNKNOWN INDICATION

REACTIONS (5)
  - CHEST PAIN [None]
  - DEHYDRATION [None]
  - HAEMATEMESIS [None]
  - PANIC ATTACK [None]
  - VOMITING [None]
